FAERS Safety Report 5977861-8 (Version None)
Quarter: 2008Q4

REPORT INFORMATION
  Report Type: 
  Country: None (occurrence: None)
  Receive Date: 20081203
  Receipt Date: 20081124
  Transmission Date: 20090506
  Serious: Yes (Other)
  Sender: FDA-Public Use
  Company Number: US-JNJCH-2008055629

PATIENT
  Age: 43 Year
  Sex: Male
  Weight: 80.7 kg

DRUGS (2)
  1. ADVANCED LISTERINE MOUTHWASH CITRUS [Suspect]
     Indication: DRUG USE FOR UNKNOWN INDICATION
     Dosage: TEXT:HALF CAPFUL ONCE
     Route: 048
     Dates: start: 20081122, end: 20081122
  2. ATENOLOL [Concomitant]
     Indication: DRUG USE FOR UNKNOWN INDICATION
     Dosage: TEXT:12.5 MG TWICE DAILY
     Route: 065

REACTIONS (1)
  - APPLICATION SITE BURN [None]
